FAERS Safety Report 7622971-2 (Version None)
Quarter: 2011Q3

REPORT INFORMATION
  Report Type: 
  Country: None (occurrence: None)
  Receive Date: 20110720
  Receipt Date: 20110719
  Transmission Date: 20111222
  Serious: Yes (Hospitalization)
  Sender: FDA-Public Use
  Company Number: IT-SANOFI-AVENTIS-2011SA045689

PATIENT
  Age: 86 Year
  Sex: Female

DRUGS (5)
  1. ACCURETIC [Concomitant]
     Indication: HYPERTENSION
     Route: 048
     Dates: start: 20110101, end: 20110512
  2. GLIBOMET [Concomitant]
     Route: 048
     Dates: start: 20110101, end: 20110512
  3. LUVION [Concomitant]
     Indication: HYPERTENSION
     Route: 048
     Dates: start: 20090101, end: 20110512
  4. LANOXIN [Concomitant]
     Route: 048
     Dates: start: 20110101, end: 20110512
  5. LASIX [Suspect]
     Indication: HYPERTENSION
     Route: 048
     Dates: start: 20090101, end: 20110512

REACTIONS (3)
  - ASTHENIA [None]
  - SYNCOPE [None]
  - VISION BLURRED [None]
